FAERS Safety Report 7801442-4 (Version None)
Quarter: 2011Q4

REPORT INFORMATION
  Report Type: 
  Country: None (occurrence: None)
  Receive Date: 20111006
  Receipt Date: 20111006
  Transmission Date: 20120403
  Serious: Yes (Hospitalization)
  Sender: FDA-Public Use
  Company Number: None

PATIENT
  Age: 48 Year
  Sex: Female
  Weight: 133.2 kg

DRUGS (10)
  1. ALBUTEROL [Concomitant]
  2. DILTIAZEM HCL [Concomitant]
  3. PHENANTOIN [Concomitant]
  4. HEPARIN [Suspect]
     Indication: DEEP VEIN THROMBOSIS
     Dosage: VARIOUS IV RECENT
     Dates: start: 20110103, end: 20110125
  5. MUPIROCIN [Concomitant]
  6. PANTOPRAZOLE [Concomitant]
  7. INSULIN [Concomitant]
  8. ASPIRIN [Concomitant]
  9. CHLORHEXIDINE GLUCONATE [Concomitant]
  10. AMIODARONE HCL [Concomitant]

REACTIONS (1)
  - HEPARIN-INDUCED THROMBOCYTOPENIA [None]
